FAERS Safety Report 9690909 (Version 1)
Quarter: 2013Q4

REPORT INFORMATION
  Report Type: Spontaneous
  Country: US (occurrence: US)
  Receive Date: 20131115
  Receipt Date: 20131115
  Transmission Date: 20140711
  Serious: No
  Sender: FDA-Public Use
  Company Number: US-TEVA-444514USA

PATIENT
  Age: 52 Year
  Sex: Female

DRUGS (3)
  1. NUVIGIL [Suspect]
     Route: 048
  2. CYMBALTA [Concomitant]
  3. LYRICA [Concomitant]

REACTIONS (1)
  - Drug ineffective [Unknown]
